FAERS Safety Report 16146303 (Version 1)
Quarter: 2019Q2

REPORT INFORMATION
  Report Type: Spontaneous
  Country: US (occurrence: US)
  Receive Date: 20190402
  Receipt Date: 20190402
  Transmission Date: 20190711
  Serious: No
  Sender: FDA-Public Use
  Company Number: US-AMGEN-USASP2019048618

PATIENT

DRUGS (1)
  1. PROLIA [Suspect]
     Active Substance: DENOSUMAB
     Indication: OSTEOPOROSIS
     Route: 065

REACTIONS (7)
  - Myalgia [Unknown]
  - Rhinorrhoea [Unknown]
  - Rales [Unknown]
  - Adverse drug reaction [Unknown]
  - Dyspnoea [Unknown]
  - Palpitations [Unknown]
  - Arthralgia [Unknown]
